FAERS Safety Report 6065678-8 (Version None)
Quarter: 2009Q1

REPORT INFORMATION
  Report Type: 
  Country: None (occurrence: None)
  Receive Date: 20090130
  Receipt Date: 20090114
  Transmission Date: 20090719
  Serious: Yes (Other)
  Sender: FDA-Public Use
  Company Number: 8040609

PATIENT
  Age: 59 Year
  Sex: Male

DRUGS (2)
  1. PREDNISOLONE [Suspect]
     Indication: IMMUNOSUPPRESSION
     Dosage: NI PO
     Route: 048
  2. CYCLOSPORINE [Suspect]
     Indication: IMMUNOSUPPRESSION
     Dosage: NI PO
     Route: 048

REACTIONS (1)
  - BASAL CELL CARCINOMA [None]
